FAERS Safety Report 7120504-0 (Version None)
Quarter: 2010Q4

REPORT INFORMATION
  Report Type: 
  Country: None (occurrence: None)
  Receive Date: 20101119
  Receipt Date: 20101119
  Transmission Date: 20110411
  Serious: No
  Sender: FDA-Public Use
  Company Number: None

PATIENT
  Age: 70 Year
  Sex: Male
  Weight: 88.7 kg

DRUGS (3)
  1. IPRATROPIUM BROMIDE [Suspect]
     Indication: SURGERY
     Dosage: 0.5 MG OTHER INHALE
     Route: 055
     Dates: start: 20100612, end: 20100621
  2. PANTOPRAZOLE [Suspect]
     Indication: GASTROINTESTINAL DISORDER
     Dosage: 40 MG OTHER IV
     Route: 042
     Dates: start: 20100612, end: 20100621
  3. PANTOPRAZOLE [Suspect]
     Indication: PROPHYLAXIS
     Dosage: 40 MG OTHER IV
     Route: 042
     Dates: start: 20100612, end: 20100621

REACTIONS (1)
  - ANGIOEDEMA [None]
